FAERS Safety Report 21270162 (Version 2)
Quarter: 2022Q3

REPORT INFORMATION
  Report Type: Spontaneous
  Country: US (occurrence: US)
  Receive Date: 20220830
  Receipt Date: 20220831
  Transmission Date: 20221026
  Serious: No
  Sender: FDA-Public Use
  Company Number: US-PFIZER INC-202201099191

PATIENT
  Sex: Female

DRUGS (1)
  1. PAXLOVID [Suspect]
     Active Substance: NIRMATRELVIR\RITONAVIR
     Indication: COVID-19 treatment
     Dosage: UNK
     Dates: start: 20220825

REACTIONS (5)
  - Dysgeusia [Not Recovered/Not Resolved]
  - Sunburn [Recovering/Resolving]
  - Skin discolouration [Recovering/Resolving]
  - Feeding disorder [Unknown]
  - Anxiety [Unknown]
